FAERS Safety Report 6185744-6 (Version None)
Quarter: 2009Q2

REPORT INFORMATION
  Report Type: 
  Country: None (occurrence: None)
  Receive Date: 20090511
  Receipt Date: 20090427
  Transmission Date: 20091009
  Serious: Yes (Other)
  Sender: FDA-Public Use
  Company Number: US-BIOGENIDEC-2009BI011143

PATIENT
  Age: 25 Year
  Sex: Female

DRUGS (3)
  1. TYSABRI [Suspect]
     Indication: MULTIPLE SCLEROSIS
     Route: 042
     Dates: start: 20080402, end: 20081020
  2. DETROL [Concomitant]
  3. MEDICATION NOS [Concomitant]
     Route: 030
     Dates: start: 20081125, end: 20081125

REACTIONS (2)
  - ABORTION INDUCED [None]
  - PREGNANCY [None]
